FAERS Safety Report 8742390 (Version 1)
Quarter: 2012Q4

REPORT INFORMATION
  Report Type: Report from Study
  Country: FR (occurrence: FR)
  Receive Date: 20120911
  Receipt Date: 20120911
  Transmission Date: 20130627
  Serious: Yes (Death, Other)
  Sender: FDA-Public Use
  Company Number: FR-ASTELLAS-2012US007162

PATIENT
  Age: 76 None
  Sex: Male

DRUGS (4)
  1. ERLOTINIB TABLET [Suspect]
     Indication: NON-SMALL CELL LUNG CANCER
     Dosage: 150 mg, UID/QD
     Route: 048
  2. ERLOTINIB TABLET [Suspect]
     Dosage: 150 mg, UID/QD
     Route: 048
     Dates: start: 20120817
  3. CARBOPLATIN [Suspect]
     Indication: NON-SMALL CELL LUNG CANCER
     Dosage: 200 DF, Unknown/D
     Route: 065
     Dates: start: 20120803
  4. PEMETREXED DISODIUM [Suspect]
     Indication: NON-SMALL CELL LUNG CANCER
     Dosage: 200 DF, Unknown/D
     Route: 065
     Dates: start: 20120803

REACTIONS (7)
  - Neutropenia [Fatal]
  - Thrombocytopenia [Fatal]
  - Renal failure [Fatal]
  - Malignant neoplasm progression [Unknown]
  - Dehydration [Unknown]
  - Purpura [Unknown]
  - Dermatitis acneiform [Unknown]
